FAERS Safety Report 6491378-6 (Version None)
Quarter: 2009Q4

REPORT INFORMATION
  Report Type: 
  Country: None (occurrence: None)
  Receive Date: 20091208
  Receipt Date: 20091202
  Transmission Date: 20100525
  Serious: Yes (Death)
  Sender: FDA-Public Use
  Company Number: PERC20090150

PATIENT
  Age: 33 Year
  Sex: Male

DRUGS (1)
  1. PERCOCET [Suspect]
     Indication: PAIN

REACTIONS (5)
  - DRUG DEPENDENCE [None]
  - DYSARTHRIA [None]
  - GAIT DISTURBANCE [None]
  - OCULAR HYPERAEMIA [None]
  - OVERDOSE [None]
